FAERS Safety Report 5273722-0 (Version None)
Quarter: 2007Q1

REPORT INFORMATION
  Report Type: 
  Country: None (occurrence: None)
  Receive Date: 20061219
  Receipt Date: 20061002
  Transmission Date: 20070707
  Serious: Yes (Hospitalization, Other)
  Sender: FDA-Public Use
  Company Number: US-JNJFOC-20061000800

PATIENT
  Age: 21 Year
  Sex: Female
  Weight: 54.8852 kg

DRUGS (3)
  1. ORTHO EVRA [Suspect]
     Indication: DRUG USE FOR UNKNOWN INDICATION
     Dosage: 1 DOSE(S), 1 IN 1 WEEK, TRANSDERMAL
     Route: 062
  2. METFORMIN HCL [Concomitant]
  3. FERROUS SULFATE TAB [Concomitant]

REACTIONS (1)
  - PULMONARY EMBOLISM [None]
